FAERS Safety Report 8108358-7 (Version None)
Quarter: 2012Q1

REPORT INFORMATION
  Report Type: 
  Country: None (occurrence: None)
  Receive Date: 20120202
  Receipt Date: 20120126
  Transmission Date: 20120608
  Serious: Yes (Hospitalization)
  Sender: FDA-Public Use
  Company Number: PHHY2012CA007201

PATIENT
  Sex: Female

DRUGS (3)
  1. GILENYA [Suspect]
     Indication: RELAPSING-REMITTING MULTIPLE SCLEROSIS
     Dosage: 0.5 MG, UNK
     Dates: start: 20110507
  2. PERINDOPRIL ERBUMINE [Concomitant]
     Indication: HYPERTENSION
     Dosage: UNK UKN, UNK
  3. ZOLOFT [Concomitant]
     Indication: DEPRESSION
     Dosage: UNK UKN, UNK

REACTIONS (4)
  - CONFUSIONAL STATE [None]
  - DYSKINESIA [None]
  - LOSS OF CONSCIOUSNESS [None]
  - CONVULSION [None]
